FAERS Safety Report 10087074 (Version 1)
Quarter: 2014Q2

REPORT INFORMATION
  Report Type: Spontaneous
  Country: IT (occurrence: IT)
  Receive Date: 20140418
  Receipt Date: 20140418
  Transmission Date: 20141212
  Serious: Yes (Other)
  Sender: FDA-Public Use
  Company Number: IT-ELI_LILLY_AND_COMPANY-IT201404002326

PATIENT
  Age: 77 Year
  Sex: Female
  Weight: 50 kg

DRUGS (12)
  1. FORSTEO [Suspect]
     Indication: OSTEOPOROSIS
     Dosage: 20 UNK, QD
     Route: 058
     Dates: start: 20140327, end: 20140330
  2. PANTOPRAZOLE [Concomitant]
  3. WARFARIN SODIUM [Concomitant]
  4. CONDRAL [Concomitant]
  5. SIMVASTATIN [Concomitant]
  6. OLMESARTAN [Concomitant]
  7. MOVICOL [Concomitant]
  8. VALPROIC ACID [Concomitant]
  9. LERCANIDIPINE [Concomitant]
  10. IDEOS [Concomitant]
  11. LOPRESOR [Concomitant]
  12. PSYLLIUM [Concomitant]

REACTIONS (3)
  - Aphasia [Recovered/Resolved]
  - Coordination abnormal [Recovered/Resolved]
  - Colour blindness acquired [Recovered/Resolved]
